FAERS Safety Report 12137224 (Version 1)
Quarter: 2016Q1

REPORT INFORMATION
  Report Type: Spontaneous
  Country: FR (occurrence: FR)
  Receive Date: 20160302
  Receipt Date: 20160302
  Transmission Date: 20160526
  Serious: Yes (Other)
  Sender: FDA-Public Use
  Company Number: FR-AKORN PHARMACEUTICALS-2016AKN00109

PATIENT
  Age: 2 Year
  Sex: Male

DRUGS (1)
  1. ISOTRETINOIN [Suspect]
     Active Substance: ISOTRETINOIN
     Indication: ACNE CONGLOBATA
     Dosage: 0.5 MG/KG, 1X/DAY
     Route: 065

REACTIONS (3)
  - Normochromic normocytic anaemia [Recovered/Resolved]
  - Rhabdomyolysis [Recovered/Resolved]
  - Autoimmune thyroiditis [Recovered/Resolved]
